FAERS Safety Report 12340978 (Version 3)
Quarter: 2016Q2

REPORT INFORMATION
  Report Type: Spontaneous
  Country: US (occurrence: US)
  Receive Date: 20160506
  Receipt Date: 20160520
  Transmission Date: 20160815
  Serious: Yes (Hospitalization, Other)
  Sender: FDA-Public Use
  Company Number: US-PFIZER INC-2016233075

PATIENT
  Age: 83 Year
  Sex: Male
  Weight: 45 kg

DRUGS (2)
  1. INLYTA [Suspect]
     Active Substance: AXITINIB
     Dosage: UNK
     Route: 048
     Dates: start: 20160420
  2. INLYTA [Suspect]
     Active Substance: AXITINIB
     Indication: RENAL CANCER
     Dosage: 5 MG, 2X/DAY
     Route: 048
     Dates: start: 20160413, end: 20160414

REACTIONS (10)
  - Fatigue [Unknown]
  - Pain in extremity [Unknown]
  - Pulmonary oedema [Unknown]
  - Dehydration [Unknown]
  - Headache [Recovered/Resolved]
  - Renal impairment [Unknown]
  - Abdominal pain upper [Unknown]
  - Disease progression [Unknown]
  - Dyspnoea [Unknown]
  - Renal cancer [Unknown]

NARRATIVE: CASE EVENT DATE: 20160415
